FAERS Safety Report 14333679 (Version 1)
Quarter: 2017Q4

REPORT INFORMATION
  Report Type: Spontaneous
  Country: US (occurrence: US)
  Receive Date: 20171227
  Receipt Date: 20171227
  Transmission Date: 20180321
  Serious: No
  Sender: FDA-Public Use
  Company Number: None

PATIENT
  Age: 52 Year
  Sex: Female

DRUGS (21)
  1. SUCRALFATE. [Concomitant]
     Active Substance: SUCRALFATE
  2. AMBIEN [Concomitant]
     Active Substance: ZOLPIDEM TARTRATE
  3. ESTRADIOL. [Concomitant]
     Active Substance: ESTRADIOL
  4. CLONAZEPAM. [Concomitant]
     Active Substance: CLONAZEPAM
  5. FUROSEMIDE. [Concomitant]
     Active Substance: FUROSEMIDE
  6. MULTIVITAMIN [Concomitant]
     Active Substance: VITAMINS
  7. FENOFIBRATE. [Concomitant]
     Active Substance: FENOFIBRATE
  8. CALCIFEROL [Concomitant]
     Active Substance: ERGOCALCIFEROL
  9. CALCIUM [Concomitant]
     Active Substance: CALCIUM
  10. ZOLPIDEM [Concomitant]
     Active Substance: ZOLPIDEM\ZOLPIDEM TARTRATE
  11. AMANTADINE. [Concomitant]
     Active Substance: AMANTADINE HYDROCHLORIDE
  12. AMITRIPTYLINE [Concomitant]
     Active Substance: AMITRIPTYLINE
  13. VERAPAMIL [Concomitant]
     Active Substance: VERAPAMIL HYDROCHLORIDE
  14. NAPROXEN. [Concomitant]
     Active Substance: NAPROXEN
  15. PANTOPRAZOLE [Concomitant]
     Active Substance: PANTOPRAZOLE
  16. POT CHLORIDE [Concomitant]
     Active Substance: POTASSIUM CHLORIDE
  17. CYMBALTA [Concomitant]
     Active Substance: DULOXETINE HYDROCHLORIDE
  18. DULOXETINE. [Concomitant]
     Active Substance: DULOXETINE
  19. ARMPDAFINIL [Concomitant]
  20. GILENYA [Suspect]
     Active Substance: FINGOLIMOD HYDROCHLORIDE
     Indication: MULTIPLE SCLEROSIS
     Route: 048
     Dates: start: 20161102
  21. PREDNISONE. [Concomitant]
     Active Substance: PREDNISONE

REACTIONS (1)
  - Unevaluable event [None]

NARRATIVE: CASE EVENT DATE: 20171123
